FAERS Safety Report 4380960-8 (Version None)
Quarter: 2004Q2

REPORT INFORMATION
  Report Type: 
  Country: None (occurrence: None)
  Receive Date: 20040614
  Receipt Date: 20040528
  Transmission Date: 20050107
  Serious: Yes (Hospitalization)
  Sender: FDA-Public Use
  Company Number: 2004UW11959

PATIENT
  Age: 54 Year
  Sex: Female

DRUGS (1)
  1. ELAVIL [Suspect]
     Dosage: 10 G PO
     Route: 048

REACTIONS (9)
  - BRONCHOPNEUMONIA [None]
  - COMA [None]
  - ELECTROCARDIOGRAM QRS COMPLEX PROLONGED [None]
  - ELECTROCARDIOGRAM QT PROLONGED [None]
  - EPILEPSY [None]
  - HYPOCALCAEMIA [None]
  - HYPOTHERMIA [None]
  - OVERDOSE [None]
  - VENTRICULAR EXTRASYSTOLES [None]
